FAERS Safety Report 21578504 (Version 3)
Quarter: 2023Q2

REPORT INFORMATION
  Report Type: Report from Study
  Country: US (occurrence: US)
  Receive Date: 20221110
  Receipt Date: 20230421
  Transmission Date: 20230722
  Serious: Yes (Other)
  Sender: FDA-Public Use
  Company Number: US-TAKEDA-2022TUS083063

PATIENT
  Sex: Female

DRUGS (8)
  1. TEDUGLUTIDE [Suspect]
     Active Substance: TEDUGLUTIDE
     Indication: Short-bowel syndrome
     Dosage: 2.76 MILLIGRAM, QD
     Route: 058
     Dates: start: 20221014
  2. TEDUGLUTIDE [Suspect]
     Active Substance: TEDUGLUTIDE
     Indication: Short-bowel syndrome
     Dosage: 2.76 MILLIGRAM, QD
     Route: 058
     Dates: start: 20221014
  3. TEDUGLUTIDE [Suspect]
     Active Substance: TEDUGLUTIDE
     Indication: Short-bowel syndrome
     Dosage: 2.76 MILLIGRAM, QD
     Route: 058
     Dates: start: 20221014
  4. TEDUGLUTIDE [Suspect]
     Active Substance: TEDUGLUTIDE
     Indication: Short-bowel syndrome
     Dosage: 2.76 MILLIGRAM, QD
     Route: 058
     Dates: start: 20221014
  5. TEDUGLUTIDE [Suspect]
     Active Substance: TEDUGLUTIDE
     Dosage: 2.76 MILLIGRAM, QD
     Route: 058
     Dates: start: 20221015
  6. TEDUGLUTIDE [Suspect]
     Active Substance: TEDUGLUTIDE
     Dosage: 2.76 MILLIGRAM, QD
     Route: 058
     Dates: start: 20221015
  7. TEDUGLUTIDE [Suspect]
     Active Substance: TEDUGLUTIDE
     Dosage: 2.76 MILLIGRAM, QD
     Route: 058
     Dates: start: 20221015
  8. TEDUGLUTIDE [Suspect]
     Active Substance: TEDUGLUTIDE
     Dosage: 2.76 MILLIGRAM, QD
     Route: 058
     Dates: start: 20221015

REACTIONS (12)
  - Haemorrhage [Unknown]
  - Haemarthrosis [Unknown]
  - Swelling [Unknown]
  - Palpitations [Unknown]
  - Night sweats [Unknown]
  - Dry skin [Unknown]
  - Respiratory symptom [Unknown]
  - Headache [Unknown]
  - Nausea [Unknown]
  - Flatulence [Unknown]
  - Abdominal pain upper [Unknown]
  - Decreased appetite [Unknown]
